FAERS Safety Report 8477375-X (Version None)
Quarter: 2012Q2

REPORT INFORMATION
  Report Type: 
  Country: None (occurrence: None)
  Receive Date: 20120629
  Receipt Date: 20120530
  Transmission Date: 20120825
  Serious: Yes (Hospitalization)
  Sender: FDA-Public Use
  Company Number: FR-UCBSA-043694

PATIENT
  Age: 43 Year
  Sex: Female

DRUGS (1)
  1. CIMZIA [Suspect]
     Indication: ANKYLOSING SPONDYLITIS
     Route: 058

REACTIONS (1)
  - PNEUMONIA [None]
